FAERS Safety Report 14402512 (Version 2)
Quarter: 2018Q1

REPORT INFORMATION
  Report Type: Spontaneous
  Country: US (occurrence: US)
  Receive Date: 20180117
  Receipt Date: 20180312
  Transmission Date: 20180509
  Serious: No
  Sender: FDA-Public Use
  Company Number: US-PFIZER INC-2018020143

PATIENT
  Age: 59 Year
  Sex: Male

DRUGS (6)
  1. MELOXICAM. [Concomitant]
     Active Substance: MELOXICAM
     Dosage: 15 MG, UNK
     Dates: start: 201709
  2. LYRICA [Suspect]
     Active Substance: PREGABALIN
     Dosage: 50 MG, DAILY
     Dates: start: 201709
  3. LYRICA [Suspect]
     Active Substance: PREGABALIN
     Indication: SPINAL DISORDER
     Dosage: 300 MG, DAILY
     Route: 048
  4. LYRICA [Suspect]
     Active Substance: PREGABALIN
     Dosage: 75 MG, 2X/DAY (75 MILLIGRAMS IN MORNING AND THE 75 MILLIGRAMS IN THE EVENING)
     Route: 048
  5. MIRTAZAPINE. [Concomitant]
     Active Substance: MIRTAZAPINE
     Dosage: 30 MG, UNK
     Dates: start: 201709
  6. LYRICA [Suspect]
     Active Substance: PREGABALIN
     Dosage: 150 MG, DAILY
     Route: 048

REACTIONS (5)
  - Vision blurred [Unknown]
  - Peripheral coldness [Unknown]
  - Diplopia [Unknown]
  - Photophobia [Unknown]
  - Hypoaesthesia [Not Recovered/Not Resolved]

NARRATIVE: CASE EVENT DATE: 201709
